FAERS Safety Report 9029591 (Version 3)
Quarter: 2013Q2

REPORT INFORMATION
  Report Type: Spontaneous
  Country: US (occurrence: US)
  Receive Date: 20130125
  Receipt Date: 20130610
  Transmission Date: 20140414
  Serious: Yes (Hospitalization, Other)
  Sender: FDA-Public Use
  Company Number: US-009507513-1301USA011123

PATIENT
  Age: 49 Year
  Sex: Male
  Weight: 83.9 kg

DRUGS (13)
  1. VICTRELIS [Suspect]
     Indication: HEPATITIS C
     Dosage: 800 MG, TID
     Route: 048
     Dates: start: 20120605, end: 201301
  2. VICTRELIS [Suspect]
     Dosage: 800 MG, TID
     Route: 048
     Dates: start: 201301, end: 20130115
  3. PEGASYS [Suspect]
     Indication: HEPATITIS C
     Dosage: 180 MICROGRAM, QW
     Route: 058
     Dates: start: 20120508
  4. PEGASYS [Suspect]
     Dosage: 180 MICROGRAM, QW
     Route: 058
     Dates: end: 20130109
  5. RIBASPHERE [Suspect]
     Indication: HEPATITIS C
     Dosage: 600 MG, BID
     Route: 048
     Dates: start: 20120508
  6. RIBASPHERE [Suspect]
     Dosage: 600 MG, BID
     Route: 048
     Dates: end: 20130109
  7. DULERA [Concomitant]
     Indication: EMPHYSEMA
     Dosage: TOTAL DAILY DOSE 800 MG
     Route: 048
  8. AMBIEN [Concomitant]
     Indication: SLEEP DISORDER
     Dosage: TOTAL DAILY DOSE 10 MG, HS
     Route: 048
  9. OXYCODONE [Concomitant]
     Dosage: TOTAL DAILY DOSE 5 MG, QD
     Route: 048
  10. COMBIVENT [Concomitant]
     Indication: EMPHYSEMA
     Dosage: UNK, PRN
     Route: 055
  11. AMLODIPINE BESYLATE (+) BENAZEPRIL HYDROCHLORIDE [Concomitant]
     Indication: HYPERTENSION
     Dosage: UNK, QD
     Route: 048
  12. LASIX (FUROSEMIDE) [Concomitant]
     Dosage: 20 MG, QD
  13. CITALOPRAM [Concomitant]
     Dosage: 40 MG, QD

REACTIONS (4)
  - Pneumonia [Recovered/Resolved]
  - Influenza [Recovered/Resolved]
  - Pleural effusion [Recovered/Resolved]
  - Adverse event [Unknown]
